FAERS Safety Report 6256813-7 (Version None)
Quarter: 2009Q3

REPORT INFORMATION
  Report Type: 
  Country: None (occurrence: None)
  Receive Date: 20090706
  Receipt Date: 20090624
  Transmission Date: 20100115
  Serious: Yes (Other)
  Sender: FDA-Public Use
  Company Number: PHHY2009BR24213

PATIENT
  Sex: Female
  Weight: 55 kg

DRUGS (1)
  1. CARBAMAZEPINE [Suspect]
     Indication: CONVULSION
     Dosage: 200 MG, BID
     Route: 048
     Dates: start: 20090201

REACTIONS (8)
  - ASTHENIA [None]
  - BITE [None]
  - CONVULSION [None]
  - DECREASED APPETITE [None]
  - DROOLING [None]
  - FALL [None]
  - HYPOTENSION [None]
  - SOMNOLENCE [None]
